FAERS Safety Report 9361524 (Version 1)
Quarter: 2013Q2

REPORT INFORMATION
  Report Type: Spontaneous
  Country: US (occurrence: US)
  Receive Date: 20130621
  Receipt Date: 20130621
  Transmission Date: 20140414
  Serious: Yes (Hospitalization)
  Sender: FDA-Public Use
  Company Number: US-US-EMD SERONO, INC.-7088244

PATIENT
  Age: 34 Year
  Sex: Female
  Weight: 48 kg

DRUGS (2)
  1. REBIF [Suspect]
     Indication: PRODUCT USED FOR UNKNOWN INDICATION
     Route: 058
     Dates: start: 20071120, end: 201110
  2. REBIF [Suspect]
     Route: 058
     Dates: start: 201110

REACTIONS (5)
  - Renal failure [Recovered/Resolved]
  - Anaemia [Not Recovered/Not Resolved]
  - Influenza like illness [Unknown]
  - Injection site pain [Not Recovered/Not Resolved]
  - Injection site erythema [Not Recovered/Not Resolved]
